FAERS Safety Report 5069855-4 (Version None)
Quarter: 2006Q3

REPORT INFORMATION
  Report Type: 
  Country: None (occurrence: None)
  Receive Date: 20060803
  Receipt Date: 20060727
  Transmission Date: 20061208
  Serious: Yes (Hospitalization)
  Sender: FDA-Public Use
  Company Number: PHRM2006FR02187

PATIENT
  Age: 41 Year
  Sex: Male
  Weight: 89 kg

DRUGS (4)
  1. VOLTAREN [Suspect]
     Route: 048
     Dates: start: 20060608, end: 20060613
  2. OLMETEC [Suspect]
     Indication: ESSENTIAL HYPERTENSION
     Dosage: 20 MG/DAY
     Route: 048
     Dates: start: 20060501, end: 20060613
  3. SOPROL [Concomitant]
     Indication: ESSENTIAL HYPERTENSION
     Route: 048
     Dates: end: 20060611
  4. LODALES [Concomitant]
     Dosage: 20 MG, QD
     Route: 048
     Dates: end: 20060613

REACTIONS (24)
  - ACUTE PULMONARY OEDEMA [None]
  - ANURIA [None]
  - ATRIAL FIBRILLATION [None]
  - BLOOD ALKALINE PHOSPHATASE INCREASED [None]
  - BLOOD CREATININE INCREASED [None]
  - BLOOD UREA INCREASED [None]
  - C-REACTIVE PROTEIN INCREASED [None]
  - DIARRHOEA [None]
  - ELECTROCARDIOGRAM ST SEGMENT DEPRESSION [None]
  - ELECTROCARDIOGRAM T WAVE INVERSION [None]
  - GAMMA-GLUTAMYLTRANSFERASE INCREASED [None]
  - HAEMODIALYSIS [None]
  - HYPERHIDROSIS [None]
  - HYPONATRAEMIA [None]
  - INFLAMMATION [None]
  - LIPASE INCREASED [None]
  - LIVER DISORDER [None]
  - NEUTROPHIL COUNT INCREASED [None]
  - PYREXIA [None]
  - RENAL FAILURE ACUTE [None]
  - SEPSIS [None]
  - TRANSAMINASES INCREASED [None]
  - TROPONIN INCREASED [None]
  - WHITE BLOOD CELL COUNT INCREASED [None]
